FAERS Safety Report 10753331 (Version 1)
Quarter: 2015Q1

REPORT INFORMATION
  Report Type: Spontaneous
  Country: IT (occurrence: IT)
  Receive Date: 20150130
  Receipt Date: 20150130
  Transmission Date: 20150721
  Serious: Yes (Other)
  Sender: FDA-Public Use
  Company Number: IT-GILEAD-2015-0134403

PATIENT
  Age: 48 Year
  Sex: Male

DRUGS (6)
  1. FOLINA                             /00024201/ [Concomitant]
     Active Substance: FOLIC ACID
  2. CLENIL                             /00212602/ [Concomitant]
  3. BRONCOVALEAS                       /00139501/ [Concomitant]
  4. FLUIMUCIL [Concomitant]
     Active Substance: ACETYLCYSTEINE
  5. KALETRA [Concomitant]
     Active Substance: LOPINAVIR\RITONAVIR
  6. TRUVADA [Suspect]
     Active Substance: EMTRICITABINE\TENOFOVIR DISOPROXIL FUMARATE
     Indication: HIV INFECTION
     Dosage: 1 DF, UNK
     Route: 048
     Dates: start: 20090313, end: 20141110

REACTIONS (2)
  - Proteinuria [Recovered/Resolved with Sequelae]
  - Osteoporosis [Recovered/Resolved with Sequelae]

NARRATIVE: CASE EVENT DATE: 20140514
